FAERS Safety Report 7933966-3 (Version None)
Quarter: 2011Q4

REPORT INFORMATION
  Report Type: 
  Country: None (occurrence: None)
  Receive Date: 20111122
  Receipt Date: 20111116
  Transmission Date: 20120403
  Serious: Yes (Other)
  Sender: FDA-Public Use
  Company Number: PHHY2011BE098859

PATIENT
  Sex: Female

DRUGS (13)
  1. FEMARA [Suspect]
     Indication: BREAST CANCER
     Dosage: 2.5 MG, DAILY
     Dates: start: 20110801
  2. PERDOLAN [Concomitant]
     Dosage: 500 MG, UNK
  3. RAMIPRIL [Concomitant]
  4. ELTHYRONE [Concomitant]
     Dosage: 50 U, UNK
  5. HERCEPTIN [Concomitant]
     Indication: BREAST CANCER
     Dosage: 120 MG, QW
     Route: 042
  6. LORAMET [Concomitant]
     Dosage: 2 MG, UNK
  7. TASIGNA [Suspect]
     Indication: CHRONIC MYELOID LEUKAEMIA
     Dosage: 300 MG, DAILY
     Dates: start: 20110201
  8. METAMIZOLE SODIUM MONOHYDRATE [Concomitant]
     Dosage: 500 MG, UNK
  9. LEXOTAN [Concomitant]
     Dosage: 6 MG, UNK
  10. SPIRIVA [Concomitant]
  11. DURAGESIC-100 [Concomitant]
     Dosage: 12.5 U, UNK
     Dates: start: 20111114
  12. PANTOPRAZOLE [Concomitant]
     Dosage: 20 MG, UNK
  13. SIPRALEXA [Concomitant]
     Dosage: 10 MG, UNK

REACTIONS (3)
  - MYALGIA [None]
  - BLOOD CREATININE INCREASED [None]
  - BLOOD LACTATE DEHYDROGENASE INCREASED [None]
